FAERS Safety Report 7382213-2 (Version None)
Quarter: 2011Q1

REPORT INFORMATION
  Report Type: 
  Country: None (occurrence: None)
  Receive Date: 20110329
  Receipt Date: 20101229
  Transmission Date: 20110831
  Serious: No
  Sender: FDA-Public Use
  Company Number: US-BAYER-2011-026192

PATIENT
  Sex: Female
  Weight: 52 kg

DRUGS (3)
  1. NEURONTIN [Concomitant]
  2. MULTI-VITAMINS [Suspect]
     Indication: VITAMIN SUPPLEMENTATION
     Dosage: UNK
     Route: 048
     Dates: start: 20100101
  3. LEVOTHYROXINE SODIUM [Concomitant]

REACTIONS (1)
  - NAUSEA [None]
